FAERS Safety Report 5082500-7 (Version None)
Quarter: 2006Q3

REPORT INFORMATION
  Report Type: 
  Country: None (occurrence: None)
  Receive Date: 20060814
  Receipt Date: 20060801
  Transmission Date: 20061208
  Serious: Yes (Disabling)
  Sender: FDA-Public Use
  Company Number: 2006094274

PATIENT
  Sex: Male
  Weight: 108.8633 kg

DRUGS (4)
  1. VIAGRA [Suspect]
     Indication: ERECTILE DYSFUNCTION
     Dosage: 50 MG
  2. LORAZEPAM [Concomitant]
  3. IBUPROFEN [Concomitant]
  4. VITAMINS [Concomitant]

REACTIONS (7)
  - BACK DISORDER [None]
  - BLOOD TRIGLYCERIDES INCREASED [None]
  - CHRONIC FATIGUE SYNDROME [None]
  - DRUG INEFFECTIVE [None]
  - FEELING ABNORMAL [None]
  - SLEEP APNOEA SYNDROME [None]
  - VENOUS INSUFFICIENCY [None]
